FAERS Safety Report 18328491 (Version 1)
Quarter: 2020Q3

REPORT INFORMATION
  Report Type: Spontaneous
  Country: DE (occurrence: DE)
  Receive Date: 20200930
  Receipt Date: 20200930
  Transmission Date: 20201103
  Serious: Yes (Hospitalization, Other)
  Sender: FDA-Public Use
  Company Number: DE-ASTELLAS-2020US033434

PATIENT
  Sex: Female

DRUGS (1)
  1. TACROLIMUS. [Suspect]
     Active Substance: TACROLIMUS
     Indication: ALLOGENIC STEM CELL TRANSPLANTATION
     Dosage: UNK UNK, UNKNOWN FREQ.
     Route: 048

REACTIONS (2)
  - Product use in unapproved indication [Unknown]
  - Graft versus host disease in gastrointestinal tract [Recovered/Resolved with Sequelae]
